FAERS Safety Report 9476811 (Version 1)
Quarter: 2013Q3

REPORT INFORMATION
  Report Type: Spontaneous
  Country: US (occurrence: US)
  Receive Date: 20130826
  Receipt Date: 20130826
  Transmission Date: 20140515
  Serious: No
  Sender: FDA-Public Use
  Company Number: US-TARO-2013P1003918

PATIENT
  Age: 72 Year
  Sex: Female
  Weight: 69.4 kg

DRUGS (3)
  1. CLOBETASOL PROPIONATE OINTMENT USP 0.05% [Suspect]
     Route: 061
     Dates: start: 201211, end: 201303
  2. CLOBETASOL PROPIONATE OINTMENT USP 0.05% [Suspect]
     Route: 061
     Dates: start: 201211, end: 201303
  3. CIPROFLOXACIN EYE DROPS [Concomitant]
     Route: 061

REACTIONS (7)
  - Wound haemorrhage [Recovering/Resolving]
  - Rash [Recovering/Resolving]
  - Heart rate increased [Recovered/Resolved]
  - Inappropriate schedule of drug administration [Not Recovered/Not Resolved]
  - Dermatitis [Not Recovered/Not Resolved]
  - Dry skin [Not Recovered/Not Resolved]
  - Hypersensitivity [Unknown]
